FAERS Safety Report 5363176-8 (Version None)
Quarter: 2007Q2

REPORT INFORMATION
  Report Type: 
  Country: None (occurrence: None)
  Receive Date: 20070620
  Receipt Date: 20070612
  Transmission Date: 20071010
  Serious: Yes (Hospitalization)
  Sender: FDA-Public Use
  Company Number: PHBS2007PT09145

PATIENT
  Age: 66 Year
  Sex: Male

DRUGS (6)
  1. TEGRETOL [Suspect]
     Indication: CONVULSION
     Dosage: 600 MG/DAY
     Route: 048
     Dates: start: 20070301, end: 20070401
  2. PREDNISOLONE [Concomitant]
  3. METOCLOPRAMIDE HYDROCHLORIDE [Concomitant]
     Route: 048
  4. OMEPRAZOLE [Concomitant]
     Route: 048
  5. RADIOTHERAPY [Concomitant]
  6. TOPOTECAN [Concomitant]

REACTIONS (6)
  - ALANINE AMINOTRANSFERASE INCREASED [None]
  - ASPARTATE AMINOTRANSFERASE INCREASED [None]
  - BLOOD BILIRUBIN INCREASED [None]
  - GAMMA-GLUTAMYLTRANSFERASE INCREASED [None]
  - HEPATITIS B [None]
  - HEPATITIS TOXIC [None]
